FAERS Safety Report 6150043-5 (Version None)
Quarter: 2009Q2

REPORT INFORMATION
  Report Type: 
  Country: None (occurrence: None)
  Receive Date: 20090407
  Receipt Date: 20090319
  Transmission Date: 20091009
  Serious: Yes (Life-Threatening)
  Sender: FDA-Public Use
  Company Number: PVS20-19-MAR-2009

PATIENT
  Age: 30 Year
  Sex: Female
  Weight: 67 kg

DRUGS (6)
  1. SEROMYCIN [Suspect]
     Indication: PULMONARY TUBERCULOSIS
     Dosage: 750 MG DAILY, ORAL
     Route: 048
     Dates: start: 20070705, end: 20080514
  2. ETHIONAMIDE (ETHIONAMIDE) [Concomitant]
  3. OFLOXACIN (OFLOXACIN) [Concomitant]
  4. PYRAZINAMIDE [Concomitant]
  5. ETHAMBUTOL HCL [Concomitant]
  6. KANAMYCIN [Concomitant]

REACTIONS (3)
  - DEPRESSION [None]
  - DEPRESSION SUICIDAL [None]
  - PSYCHOTIC DISORDER [None]
